FAERS Safety Report 23073854 (Version 1)
Quarter: 2023Q4

REPORT INFORMATION
  Report Type: Report from Study
  Country: ES (occurrence: None)
  Receive Date: 20231017
  Receipt Date: 20231017
  Transmission Date: 20240109
  Serious: Yes (Hospitalization)
  Sender: FDA-Public Use
  Company Number: 2023A232526

PATIENT
  Sex: Male

DRUGS (3)
  1. KOSELUGO [Suspect]
     Active Substance: SELUMETINIB
     Indication: Psychogenic seizure
     Route: 048
     Dates: start: 2020
  2. KOSELUGO [Suspect]
     Active Substance: SELUMETINIB
     Indication: Psychogenic seizure
     Route: 048
     Dates: start: 2020
  3. KOSELUGO [Suspect]
     Active Substance: SELUMETINIB
     Indication: Psychogenic seizure
     Route: 048
     Dates: start: 2020

REACTIONS (3)
  - Abdominal pain [Unknown]
  - Respiratory depression [Recovering/Resolving]
  - Toxicity to various agents [Unknown]
